FAERS Safety Report 4844836-1 (Version None)
Quarter: 2005Q4

REPORT INFORMATION
  Report Type: 
  Country: None (occurrence: None)
  Receive Date: 20051201
  Receipt Date: 20051201
  Transmission Date: 20060501
  Serious: Yes (Hospitalization)
  Sender: FDA-Public Use
  Company Number: None

PATIENT
  Age: 17 Day
  Sex: Male
  Weight: 3.9 kg

DRUGS (1)
  1. ERYTHROMYCIN [Suspect]
     Indication: CONJUNCTIVITIS CHLAMYDIAL
     Dosage: 50MG Q6HOURS PO
     Route: 048
     Dates: start: 20051115, end: 20051128

REACTIONS (2)
  - NEONATAL DISORDER [None]
  - PYLORIC STENOSIS [None]
